FAERS Safety Report 15852774 (Version 1)
Quarter: 2019Q1

REPORT INFORMATION
  Report Type: Spontaneous
  Country: US (occurrence: US)
  Receive Date: 20190122
  Receipt Date: 20190122
  Transmission Date: 20190417
  Serious: No
  Sender: FDA-Public Use
  Company Number: US-PERRIGO-18US013250

PATIENT
  Age: 57 Year
  Sex: Female

DRUGS (1)
  1. PERMETHRIN. [Suspect]
     Active Substance: PERMETHRIN
     Indication: LICE INFESTATION
     Dosage: 1 APPLICATION, TWICE IN 3 OR 4 DAYS
     Route: 061
     Dates: start: 201811, end: 201811

REACTIONS (2)
  - Inappropriate schedule of product administration [Recovered/Resolved]
  - Incorrect product administration duration [Recovered/Resolved]

NARRATIVE: CASE EVENT DATE: 201811
